FAERS Safety Report 12144130 (Version 2)
Quarter: 2016Q1

REPORT INFORMATION
  Report Type: Spontaneous
  Country: US (occurrence: US)
  Receive Date: 20160304
  Receipt Date: 20160307
  Transmission Date: 20160526
  Serious: No
  Sender: FDA-Public Use
  Company Number: US-009507513-1602USA012165

PATIENT

DRUGS (5)
  1. INTEGRILIN [Suspect]
     Active Substance: EPTIFIBATIDE
     Indication: THROMBOSIS IN DEVICE
  2. HEPARIN [Suspect]
     Active Substance: HEPARIN SODIUM
  3. BIVALIRUDIN. [Suspect]
     Active Substance: BIVALIRUDIN
     Indication: CARDIAC VENTRICULAR THROMBOSIS
  4. BIVALIRUDIN. [Suspect]
     Active Substance: BIVALIRUDIN
     Indication: THROMBOSIS IN DEVICE
  5. INTEGRILIN [Suspect]
     Active Substance: EPTIFIBATIDE
     Indication: CARDIAC VENTRICULAR THROMBOSIS

REACTIONS (2)
  - Disease recurrence [Unknown]
  - Treatment failure [Unknown]
